FAERS Safety Report 18512336 (Version 1)
Quarter: 2020Q4

REPORT INFORMATION
  Report Type: Spontaneous
  Country: US (occurrence: US)
  Receive Date: 20201117
  Receipt Date: 20201117
  Transmission Date: 20210114
  Serious: Yes (Death)
  Sender: FDA-Public Use
  Company Number: US-CELGENEUS-USA-20201103755

PATIENT
  Sex: Female
  Weight: 61.15 kg

DRUGS (2)
  1. POMALYST [Suspect]
     Active Substance: POMALIDOMIDE
     Indication: PLASMA CELL MYELOMA
     Dosage: 2 MILLIGRAM
     Route: 048
     Dates: start: 20180929
  2. POMALYST [Suspect]
     Active Substance: POMALIDOMIDE
     Indication: LEUKAEMIA

REACTIONS (2)
  - Infection [Fatal]
  - Cardiac arrest [Fatal]
